FAERS Safety Report 19364288 (Version 1)
Quarter: 2021Q2

REPORT INFORMATION
  Report Type: Spontaneous
  Country: US (occurrence: US)
  Receive Date: 20210601
  Receipt Date: 20210601
  Transmission Date: 20210717
  Serious: Yes (Life-Threatening, Hospitalization)
  Sender: FDA-Public Use
  Company Number: None

PATIENT
  Age: 56 Year
  Sex: Male
  Weight: 99 kg

DRUGS (10)
  1. FISH OIL [Concomitant]
     Active Substance: FISH OIL
  2. LISINOPRIL. [Concomitant]
     Active Substance: LISINOPRIL
  3. ZYRTEC [Concomitant]
     Active Substance: CETIRIZINE HYDROCHLORIDE
  4. NUGENIX [Concomitant]
  5. OPTIMAL KLEEN [Suspect]
     Active Substance: DIETARY SUPPLEMENT
     Indication: DETOXIFICATION
     Dosage: ?          QUANTITY:16 OUNCE(S);OTHER FREQUENCY:ONCE;?
     Route: 048
     Dates: start: 20210524, end: 20210524
  6. BAYER ASPIRIN [Concomitant]
     Active Substance: ASPIRIN
  7. SIMVASTATIN. [Concomitant]
     Active Substance: SIMVASTATIN
  8. GLUCOSAMINE [Concomitant]
     Active Substance: GLUCOSAMINE
  9. VITAMIN B12 [Concomitant]
     Active Substance: CYANOCOBALAMIN
  10. PROBIOTIC [Concomitant]
     Active Substance: PROBIOTICS NOS

REACTIONS (11)
  - Disorientation [None]
  - Renal failure [None]
  - Speech disorder [None]
  - Substance use [None]
  - Seizure [None]
  - Hyponatraemia [None]
  - Vomiting [None]
  - Hepatic failure [None]
  - Urinary incontinence [None]
  - Swelling face [None]
  - Dialysis [None]

NARRATIVE: CASE EVENT DATE: 20210524
